FAERS Safety Report 14976522 (Version 4)
Quarter: 2020Q1

REPORT INFORMATION
  Report Type: Spontaneous
  Country: US (occurrence: US)
  Receive Date: 20180605
  Receipt Date: 20200320
  Transmission Date: 20200409
  Serious: Yes (Death, Other)
  Sender: FDA-Public Use
  Company Number: PHEH2018US020949

PATIENT
  Sex: Female

DRUGS (1)
  1. TASIGNA [Suspect]
     Active Substance: NILOTINIB
     Indication: CHRONIC MYELOID LEUKAEMIA
     Dosage: 300 MG, BID
     Route: 048
     Dates: start: 20120202

REACTIONS (67)
  - Diabetes mellitus [Unknown]
  - Carotid artery stenosis [Unknown]
  - Cystitis [Unknown]
  - Vitamin D deficiency [Unknown]
  - Glucose tolerance impaired [Unknown]
  - Arthritis [Unknown]
  - Wheezing [Unknown]
  - Pneumonia [Fatal]
  - Peripheral arterial occlusive disease [Unknown]
  - Atrial fibrillation [Unknown]
  - Cardiomegaly [Unknown]
  - Abdominal pain [Unknown]
  - Eye pain [Unknown]
  - Gangrene [Unknown]
  - Hypoxia [Unknown]
  - Cellulitis [Unknown]
  - Pulmonary oedema [Unknown]
  - Hypertension [Unknown]
  - Asthenia [Unknown]
  - Alopecia [Unknown]
  - Arteriosclerosis [Unknown]
  - Cardiac failure congestive [Unknown]
  - Hypothyroidism [Unknown]
  - Peripheral vascular disorder [Unknown]
  - Asthma [Unknown]
  - Memory impairment [Unknown]
  - Pleural effusion [Unknown]
  - Chest pain [Unknown]
  - Gastrooesophageal reflux disease [Unknown]
  - Death [Fatal]
  - Acute respiratory failure [Fatal]
  - Azotaemia [Unknown]
  - Respiratory failure [Unknown]
  - Spinal compression fracture [Unknown]
  - Oedema peripheral [Unknown]
  - Fatigue [Unknown]
  - Intermittent claudication [Unknown]
  - Pain in extremity [Unknown]
  - Skin ulcer [Unknown]
  - Anxiety [Unknown]
  - Back pain [Unknown]
  - Pyrexia [Unknown]
  - Haematuria [Unknown]
  - Chronic obstructive pulmonary disease [Fatal]
  - Type V hyperlipidaemia [Unknown]
  - Chronic kidney disease [Unknown]
  - Cardiovascular disorder [Unknown]
  - Coronary artery disease [Unknown]
  - Cholelithiasis [Unknown]
  - Dyspnoea [Recovering/Resolving]
  - Gout [Unknown]
  - Myalgia [Unknown]
  - Dysuria [Unknown]
  - Diverticulitis [Unknown]
  - Renal failure [Unknown]
  - Arthropathy [Unknown]
  - Gait disturbance [Unknown]
  - Anaemia [Not Recovered/Not Resolved]
  - Diarrhoea [Unknown]
  - Cough [Unknown]
  - Neck pain [Unknown]
  - Headache [Unknown]
  - Type 2 diabetes mellitus [Unknown]
  - Essential hypertension [Unknown]
  - Cerumen impaction [Unknown]
  - Palpitations [Unknown]
  - Hyponatraemia [Unknown]
